FAERS Safety Report 24992459 (Version 2)
Quarter: 2025Q1

REPORT INFORMATION
  Report Type: Spontaneous
  Country: CZ (occurrence: CZ)
  Receive Date: 20250220
  Receipt Date: 20250307
  Transmission Date: 20250409
  Serious: Yes (Hospitalization, Other)
  Sender: BAUSCH AND LOMB
  Company Number: CZ-CELLTRION HEALTHCARE HUNGARY KFT-2024CZ009492

PATIENT
  Age: 45 Year
  Sex: Male

DRUGS (3)
  1. AZATHIOPRINE [Suspect]
     Active Substance: AZATHIOPRINE
     Indication: Crohn^s disease
     Route: 065
  2. INFLIXIMAB-DYYB [Suspect]
     Active Substance: INFLIXIMAB-DYYB
     Indication: Crohn^s disease
     Route: 065
  3. INFLIXIMAB [Suspect]
     Active Substance: INFLIXIMAB
     Indication: Crohn^s disease
     Route: 058

REACTIONS (5)
  - Sepsis [Recovering/Resolving]
  - Condition aggravated [Unknown]
  - Fistula [Recovering/Resolving]
  - Abscess [Recovering/Resolving]
  - Infection [Recovering/Resolving]

NARRATIVE: CASE EVENT DATE: 20240320
